FAERS Safety Report 12139915 (Version 1)
Quarter: 2016Q1

REPORT INFORMATION
  Report Type: Spontaneous
  Country: US (occurrence: None)
  Receive Date: 20160302
  Receipt Date: 20160302
  Transmission Date: 20160526
  Serious: Yes (Life-Threatening, Other)
  Sender: FDA-Public Use
  Company Number: None

PATIENT
  Age: 50 Year
  Sex: Female
  Weight: 145.61 kg

DRUGS (20)
  1. AMPHETAMINE [Concomitant]
     Active Substance: AMPHETAMINE
  2. HYOSCYAMINE. [Concomitant]
     Active Substance: HYOSCYAMINE
  3. TAMIFLU [Suspect]
     Active Substance: OSELTAMIVIR PHOSPHATE
     Dosage: 1 PILL
     Route: 048
     Dates: start: 20160216, end: 20160219
  4. TRAMADOL. [Concomitant]
     Active Substance: TRAMADOL
  5. ALBUTEROL. [Concomitant]
     Active Substance: ALBUTEROL
  6. FLUTICASONE NASAL [Concomitant]
     Active Substance: FLUTICASONE\FLUTICASONE PROPIONATE
  7. GABAPENTIN. [Concomitant]
     Active Substance: GABAPENTIN
  8. LIDOCAINE. [Concomitant]
     Active Substance: LIDOCAINE
  9. MELOXICAM. [Concomitant]
     Active Substance: MELOXICAM
  10. METFORMIN [Concomitant]
     Active Substance: METFORMIN HYDROCHLORIDE
  11. MILK THISTLE [Concomitant]
     Active Substance: MILK THISTLE
  12. VENTOLIN HFA INHALER [Concomitant]
  13. CRANBERRY CONCENTRATE [Concomitant]
     Active Substance: CRANBERRY CONCENTRATE
  14. FISH OIL [Concomitant]
     Active Substance: FISH OIL
  15. VITAMIN D [Concomitant]
     Active Substance: CHOLECALCIFEROL
  16. ESTRADIOL. [Concomitant]
     Active Substance: ESTRADIOL
  17. LIZMNESS [Concomitant]
  18. ADVAIR HFA [Concomitant]
     Active Substance: FLUTICASONE PROPIONATE\SALMETEROL XINAFOATE
  19. TAMSULOSIN [Concomitant]
     Active Substance: TAMSULOSIN
  20. IBRUPROFEN [Concomitant]
     Active Substance: IBUPROFEN
     Dosage: ONE PILL TWICE DAILY TAKEN BY MOUTH?
     Route: 048
     Dates: start: 20160216, end: 20160219

REACTIONS (7)
  - Limb injury [None]
  - Nausea [None]
  - Pyrexia [None]
  - Hallucination [None]
  - Suicidal ideation [None]
  - Diarrhoea [None]
  - Fear [None]

NARRATIVE: CASE EVENT DATE: 20160216
